FAERS Safety Report 16890228 (Version 1)
Quarter: 2019Q4

REPORT INFORMATION
  Report Type: Spontaneous
  Country: US (occurrence: US)
  Receive Date: 20190812
  Receipt Date: 20190812
  Transmission Date: 20200122
  Serious: No
  Sender: FDA-Public Use
  Company Number: None

PATIENT
  Age: 69 Year
  Sex: Female

DRUGS (1)
  1. ETOPOSIDE CAP 50MG [Suspect]
     Active Substance: ETOPOSIDE
     Indication: OVARIAN CANCER
     Dosage: ?          OTHER DOSE:FOR 14 DAYS;?
     Route: 048
     Dates: start: 201908

REACTIONS (2)
  - Product use issue [None]
  - Prescribed underdose [None]

NARRATIVE: CASE EVENT DATE: 20190809
